FAERS Safety Report 8473962-3 (Version None)
Quarter: 2012Q2

REPORT INFORMATION
  Report Type: 
  Country: None (occurrence: None)
  Receive Date: 20120628
  Receipt Date: 20120228
  Transmission Date: 20120825
  Serious: Yes (Other)
  Sender: FDA-Public Use
  Company Number: US-MYLANLABS-2012S1004420

PATIENT
  Age: 62 Year
  Sex: Male

DRUGS (7)
  1. LEXAPRO [Concomitant]
     Indication: DEPRESSION
     Route: 048
     Dates: start: 20111201
  2. BENADRYL [Concomitant]
     Indication: INSOMNIA
     Route: 048
     Dates: start: 20111201
  3. ARICEPT [Concomitant]
     Indication: AMNESIA
     Route: 048
     Dates: start: 20111201
  4. DEPAKOTE ER [Concomitant]
     Indication: MOOD DISORDER DUE TO A GENERAL MEDICAL CONDITION
     Dosage: 1000MG IN AM AND 1500MG AT BEDTIME
     Route: 048
     Dates: start: 20111201
  5. CLOZAPINE [Suspect]
     Indication: SCHIZOPHRENIA
     Route: 048
     Dates: start: 20100322, end: 20120217
  6. LATUDA [Concomitant]
     Indication: MOOD SWINGS
     Dosage: AT DINNER
     Route: 048
     Dates: start: 20111201
  7. ATIVAN [Concomitant]
     Indication: AGITATION
     Route: 048
     Dates: start: 20111201

REACTIONS (2)
  - LEUKOPENIA [None]
  - GRANULOCYTOPENIA [None]
